FAERS Safety Report 6749436-4 (Version None)
Quarter: 2010Q2

REPORT INFORMATION
  Report Type: 
  Country: None (occurrence: None)
  Receive Date: 20100601
  Receipt Date: 20100517
  Transmission Date: 20101027
  Serious: Yes (Other)
  Sender: FDA-Public Use
  Company Number: US-ASTRAZENECA-2009SE17750

PATIENT
  Age: 15265 Day
  Sex: Male
  Weight: 125.7 kg

DRUGS (7)
  1. SEROQUEL [Suspect]
     Route: 048
     Dates: start: 20070201
  2. NAPROXEN [Concomitant]
     Dates: start: 20070101
  3. HYDROCOD/ APAP [Concomitant]
     Dates: start: 20070101
  4. AMBIEN [Concomitant]
     Dates: start: 20070101
  5. GABAPENTIN [Concomitant]
     Dates: start: 20070101
  6. LISINOPRIL [Concomitant]
     Indication: HYPERTENSION
  7. OXYCODONE [Concomitant]

REACTIONS (2)
  - DIABETES MELLITUS [None]
  - NEUROPATHY PERIPHERAL [None]
